FAERS Safety Report 6975250-0 (Version None)
Quarter: 2010Q3

REPORT INFORMATION
  Report Type: 
  Country: None (occurrence: None)
  Receive Date: 20100910
  Receipt Date: 20090220
  Transmission Date: 20110219
  Serious: No
  Sender: FDA-Public Use
  Company Number: US-WYE-H08303309

PATIENT
  Sex: Female
  Weight: 67.19 kg

DRUGS (4)
  1. PRISTIQ [Suspect]
     Indication: INSOMNIA
     Route: 048
     Dates: start: 20090101, end: 20090201
  2. PRISTIQ [Suspect]
     Indication: ANXIETY
     Dosage: 50 MG EVERY OTHER DAY
     Route: 048
     Dates: start: 20090201, end: 20090218
  3. ATIVAN [Concomitant]
  4. MAXZIDE [Concomitant]

REACTIONS (3)
  - DRUG WITHDRAWAL SYNDROME [None]
  - INSOMNIA [None]
  - SOMNOLENCE [None]
